FAERS Safety Report 17544159 (Version 2)
Quarter: 2020Q2

REPORT INFORMATION
  Report Type: Spontaneous
  Country: ZA (occurrence: ZA)
  Receive Date: 20200316
  Receipt Date: 20200416
  Transmission Date: 20200713
  Serious: No
  Sender: FDA-Public Use
  Company Number: ZA-AMGEN-ZAFSP2020042730

PATIENT
  Age: 70 Year
  Sex: Male
  Weight: 151.8 kg

DRUGS (1)
  1. VECTIBIX [Suspect]
     Active Substance: PANITUMUMAB
     Indication: COLORECTAL CANCER METASTATIC
     Dosage: 600 MILLIGRAM, Q2WK
     Route: 042
     Dates: start: 20200225

REACTIONS (3)
  - Rash pustular [Recovered/Resolved]
  - Rash erythematous [Recovered/Resolved]
  - Rash pruritic [Recovered/Resolved]

NARRATIVE: CASE EVENT DATE: 20200304
